FAERS Safety Report 15198187 (Version 2)
Quarter: 2018Q3

REPORT INFORMATION
  Report Type: Spontaneous
  Country: RO (occurrence: RO)
  Receive Date: 20180725
  Receipt Date: 20180725
  Transmission Date: 20181010
  Serious: Yes (Death, Hospitalization, Other)
  Sender: FDA-Public Use
  Company Number: PHHY2018RO072731

PATIENT
  Age: 62 Year
  Sex: Male

DRUGS (9)
  1. INSULIN [Concomitant]
     Active Substance: INSULIN NOS
     Indication: TYPE 2 DIABETES MELLITUS
     Dosage: UNK
     Route: 065
     Dates: start: 201406
  2. SANDOSTATIN LAR DEPOT [Suspect]
     Active Substance: OCTREOTIDE ACETATE
     Indication: PANCREATIC NEUROENDOCRINE TUMOUR METASTATIC
     Dosage: 30 MG, QW
     Route: 065
     Dates: start: 201506
  3. 5 FLUOROURACIL [Suspect]
     Active Substance: FLUOROURACIL
     Indication: PANCREATIC NEUROENDOCRINE TUMOUR METASTATIC
     Dosage: UNK
     Route: 065
     Dates: start: 20170629
  4. OXALIPLATIN. [Suspect]
     Active Substance: OXALIPLATIN
     Dosage: UNK
     Route: 065
     Dates: start: 201603
  5. CAPECITABINE. [Suspect]
     Active Substance: CAPECITABINE
     Indication: PANCREATIC NEUROENDOCRINE TUMOUR METASTATIC
     Dosage: UNK
     Route: 065
     Dates: start: 201503
  6. OXALIPLATIN. [Suspect]
     Active Substance: OXALIPLATIN
     Indication: PANCREATIC NEUROENDOCRINE TUMOUR METASTATIC
     Dosage: UNK
     Route: 065
     Dates: start: 201503, end: 201506
  7. FOLINIC ACID [Suspect]
     Active Substance: LEUCOVORIN
     Indication: PANCREATIC NEUROENDOCRINE TUMOUR
     Route: 065
  8. SANDOSTATIN LAR DEPOT [Suspect]
     Active Substance: OCTREOTIDE ACETATE
     Dosage: 40 MG, QW
     Route: 065
     Dates: start: 201603
  9. IRINOTECAN [Suspect]
     Active Substance: IRINOTECAN
     Indication: PANCREATIC NEUROENDOCRINE TUMOUR METASTATIC
     Dosage: UNK
     Route: 065
     Dates: start: 20170629

REACTIONS (9)
  - Cachexia [Not Recovered/Not Resolved]
  - Back pain [Unknown]
  - Metastases to spleen [Unknown]
  - Fatigue [Fatal]
  - Metastases to liver [Unknown]
  - Pancreatic neuroendocrine tumour metastatic [Fatal]
  - Malignant neoplasm progression [Fatal]
  - Abdominal pain [Fatal]
  - Metastases to bone [Unknown]

NARRATIVE: CASE EVENT DATE: 201603
